FAERS Safety Report 16396827 (Version 1)
Quarter: 2019Q2

REPORT INFORMATION
  Report Type: Spontaneous
  Country: US (occurrence: US)
  Receive Date: 20190606
  Receipt Date: 20190606
  Transmission Date: 20190711
  Serious: No
  Sender: FDA-Public Use
  Company Number: US-LUPIN PHARMACEUTICALS INC.-2019-02122

PATIENT
  Sex: Female

DRUGS (1)
  1. IRBESARTAN TABLETS USP 150 MG [Suspect]
     Active Substance: IRBESARTAN
     Indication: PRODUCT USED FOR UNKNOWN INDICATION
     Dosage: UNK
     Route: 065

REACTIONS (9)
  - Hypertension [Recovered/Resolved]
  - Fatigue [Unknown]
  - Anxiety [Recovered/Resolved]
  - Muscle tightness [Recovered/Resolved]
  - Disturbance in attention [Recovered/Resolved]
  - Wrong technique in product usage process [Unknown]
  - Agitation [Unknown]
  - Nervousness [Unknown]
  - Restlessness [Unknown]
